FAERS Safety Report 10719381 (Version 2)
Quarter: 2015Q1

REPORT INFORMATION
  Report Type: Spontaneous
  Country: US (occurrence: US)
  Receive Date: 20150119
  Receipt Date: 20150119
  Transmission Date: 20150721
  Serious: Yes (Hospitalization)
  Sender: FDA-Public Use
  Company Number: US-UNITED THERAPEUTICS-UNT-2014-003763

PATIENT
  Age: 22 Year
  Sex: Female
  Weight: 71.2 kg

DRUGS (5)
  1. REMODULIN [Suspect]
     Active Substance: TREPROSTINIL
     Dosage: 0.197 ?G/KG, CONTINUING
     Route: 041
     Dates: start: 20080820
  2. REVATIO [Concomitant]
     Active Substance: SILDENAFIL CITRATE
     Indication: PRODUCT USED FOR UNKNOWN INDICATION
  3. REMODULIN [Suspect]
     Active Substance: TREPROSTINIL
     Indication: PULMONARY ARTERIAL HYPERTENSION
     Dosage: .197 ?G/KG, CONTINUING
     Route: 041
     Dates: start: 20080820
  4. TRACLEER [Concomitant]
     Active Substance: BOSENTAN\BOSENTAN MONOHYDRATE
     Indication: PRODUCT USED FOR UNKNOWN INDICATION
  5. COUMADIN [Concomitant]
     Active Substance: WARFARIN SODIUM
     Indication: PRODUCT USED FOR UNKNOWN INDICATION

REACTIONS (5)
  - Device related infection [Recovered/Resolved]
  - Dermatitis contact [Unknown]
  - Injection site discharge [Recovered/Resolved]
  - Blister [Unknown]
  - Injection site pustule [Recovered/Resolved]

NARRATIVE: CASE EVENT DATE: 20140707
